FAERS Safety Report 13178622 (Version 2)
Quarter: 2017Q1

REPORT INFORMATION
  Report Type: Report from Study
  Country: BE (occurrence: BE)
  Receive Date: 20170202
  Receipt Date: 20170322
  Transmission Date: 20170428
  Serious: Yes (Hospitalization)
  Sender: FDA-Public Use
  Company Number: BE-ASTRAZENECA-2017SE10096

PATIENT
  Age: 23012 Day
  Sex: Female

DRUGS (1)
  1. OLAPARIB [Suspect]
     Active Substance: OLAPARIB
     Indication: OVARIAN CANCER
     Route: 048

REACTIONS (1)
  - Pneumonia [Recovered/Resolved with Sequelae]

NARRATIVE: CASE EVENT DATE: 20170126
